FAERS Safety Report 5742551-3 (Version None)
Quarter: 2008Q2

REPORT INFORMATION
  Report Type: 
  Country: None (occurrence: None)
  Receive Date: 20080515
  Receipt Date: 20080515
  Transmission Date: 20081010
  Serious: No
  Sender: FDA-Public Use
  Company Number: None

PATIENT
  Age: 56 Year
  Sex: Female
  Weight: 90.7194 kg

DRUGS (2)
  1. BUPROPION HCL [Suspect]
     Indication: DEPRESSION
     Dosage: 300 MG 1 X DAY
     Dates: start: 20070201, end: 20080301
  2. BUPROPION HCL [Suspect]
     Indication: DEPRESSION
     Dosage: 300 MG 1 X DAY
     Dates: start: 20070201, end: 20080301

REACTIONS (1)
  - DRUG INEFFECTIVE [None]
